FAERS Safety Report 19082427 (Version 2)
Quarter: 2021Q3

REPORT INFORMATION
  Report Type: Spontaneous
  Country: CN (occurrence: CN)
  Receive Date: 20210401
  Receipt Date: 20210908
  Transmission Date: 20211014
  Serious: Yes (Other)
  Sender: FDA-Public Use
  Company Number: CN-ROCHE-2798954

PATIENT
  Age: 37 Year
  Sex: Male

DRUGS (9)
  1. BENDAMUSTINE [Concomitant]
     Active Substance: BENDAMUSTINE
     Indication: FOLLICULAR LYMPHOMA
     Route: 042
     Dates: start: 20200902
  2. BENDAMUSTINE [Concomitant]
     Active Substance: BENDAMUSTINE
     Dosage: ON 01/OCT/2020, ON 10/OCT/2020, ON 31/OCT/2020, ON 27/NOV/2020, ON 19/DEC/2020,?ON 11/JAN/2021
  3. RITUXIMAB. [Suspect]
     Active Substance: RITUXIMAB
     Dosage: START AT 50MG/HOUR, INCREASE THE RATE BY 50MG/HOUR EVERY 30MINUTES AND THE MAXIMUM DRIP RATE DOES NO
     Route: 065
     Dates: start: 20200902
  4. OBINUTUZUMAB. [Suspect]
     Active Substance: OBINUTUZUMAB
     Indication: FOLLICULAR LYMPHOMA
     Dosage: ON 27/NOV/2020, ON 19/DEC/2020, ON 11/JAN/2021
     Route: 042
     Dates: start: 20201127
  5. RITUXIMAB. [Suspect]
     Active Substance: RITUXIMAB
     Dosage: START AT 50MG/HOUR, INCREASE THE RATE BY 50MG/HOUR EVERY 30MINUTES AND THE MAXIMUM DRIP RATE DOES NO
     Route: 065
     Dates: start: 20200902
  6. ZANUBRUTINIB [Concomitant]
     Active Substance: ZANUBRUTINIB
     Indication: FOLLICULAR LYMPHOMA
     Dosage: ON 31/OCT/2020, ON 27/NOV/2020, ON 19/DEC/2020, ON 11/JAN/2021
  7. RITUXIMAB. [Suspect]
     Active Substance: RITUXIMAB
     Indication: FOLLICULAR LYMPHOMA
     Dosage: START AT 50MG/HOUR, INCREASE THE RATE BY 50MG/HOUR EVERY 30MINUTES AND THE MAXIMUM DRIP RATE DOES NO
     Route: 065
     Dates: start: 20200902
  8. RITUXIMAB. [Suspect]
     Active Substance: RITUXIMAB
     Dosage: 01/OCT/2020, 10/OCT/2020,
     Route: 065
     Dates: end: 202010
  9. OBINUTUZUMAB. [Suspect]
     Active Substance: OBINUTUZUMAB
     Dosage: ON 19/DEC/2020, ON 11/JAN/2021
     Route: 042

REACTIONS (13)
  - Hypoaesthesia oral [Recovered/Resolved]
  - Loss of consciousness [Recovered/Resolved]
  - Shock [Recovered/Resolved]
  - Body temperature increased [Recovering/Resolving]
  - Urinary incontinence [Recovered/Resolved]
  - White blood cell count decreased [Recovered/Resolved]
  - Blood pressure decreased [Recovering/Resolving]
  - Pruritus [Recovered/Resolved]
  - Pyrexia [Recovering/Resolving]
  - Urticaria [Recovered/Resolved]
  - Papule [Recovering/Resolving]
  - Anal incontinence [Recovered/Resolved]
  - Rash [Recovering/Resolving]

NARRATIVE: CASE EVENT DATE: 20201001
